FAERS Safety Report 6479520-4 (Version None)
Quarter: 2009Q4

REPORT INFORMATION
  Report Type: 
  Country: None (occurrence: None)
  Receive Date: 20091207
  Receipt Date: 20091207
  Transmission Date: 20100525
  Serious: No
  Sender: FDA-Public Use
  Company Number: None

PATIENT
  Age: 44 Year
  Sex: Male

DRUGS (1)
  1. THORAZINE [Suspect]
     Dosage: 25MG IN BOLUS
     Route: 040

REACTIONS (2)
  - HEART RATE INCREASED [None]
  - VISION BLURRED [None]
